FAERS Safety Report 6413465-0 (Version None)
Quarter: 2009Q4

REPORT INFORMATION
  Report Type: 
  Country: None (occurrence: None)
  Receive Date: 20091020
  Receipt Date: 20091012
  Transmission Date: 20100525
  Serious: Yes (Other)
  Sender: FDA-Public Use
  Company Number: 2009SP029814

PATIENT
  Age: 62 Year
  Sex: Male

DRUGS (5)
  1. REMERON [Suspect]
     Indication: DEPRESSION
     Dosage: 30 MG;QD
  2. COSAAR COMP FORTE [Concomitant]
  3. WELLBUTRIN [Concomitant]
  4. RISPERDAL [Concomitant]
  5. VALLERGAN [Concomitant]

REACTIONS (1)
  - DEEP VEIN THROMBOSIS [None]
